FAERS Safety Report 15360270 (Version 1)
Quarter: 2018Q3

REPORT INFORMATION
  Report Type: Spontaneous
  Country: CA (occurrence: CA)
  Receive Date: 20180907
  Receipt Date: 20180907
  Transmission Date: 20181010
  Serious: Yes (Other)
  Sender: FDA-Public Use
  Company Number: CA-ROCHE-2180514

PATIENT
  Age: 59 Year
  Sex: Female

DRUGS (5)
  1. SINGULAIR [Concomitant]
     Active Substance: MONTELUKAST SODIUM
     Indication: PRODUCT USED FOR UNKNOWN INDICATION
     Dosage: 1 DF, QD
     Route: 065
  2. XOLAIR [Suspect]
     Active Substance: OMALIZUMAB
     Indication: ASTHMA
     Dosage: 300 MG, EVERY 4 WEEKS
     Route: 058
     Dates: start: 20160620
  3. VENTOLIN [Concomitant]
     Active Substance: ALBUTEROL SULFATE
     Indication: PRODUCT USED FOR UNKNOWN INDICATION
     Dosage: 2 DF, TID
     Route: 065
  4. SPIRIVA [Concomitant]
     Active Substance: TIOTROPIUM BROMIDE MONOHYDRATE
     Indication: PRODUCT USED FOR UNKNOWN INDICATION
     Dosage: 1 DF, QD
     Route: 065
  5. SYMBICORT [Concomitant]
     Active Substance: BUDESONIDE\FORMOTEROL FUMARATE DIHYDRATE
     Indication: PRODUCT USED FOR UNKNOWN INDICATION
     Dosage: 2 DF, TID
     Route: 065

REACTIONS (19)
  - Angiotensin converting enzyme increased [Unknown]
  - Smoke sensitivity [Unknown]
  - Upper respiratory tract infection [Unknown]
  - Eosinophilia [Unknown]
  - Hilar lymphadenopathy [Unknown]
  - Dust allergy [Unknown]
  - Cough [Unknown]
  - Bundle branch block right [Unknown]
  - Lymph node calcification [Unknown]
  - Asthma [Unknown]
  - Discomfort [Unknown]
  - Chest discomfort [Unknown]
  - Wheezing [Unknown]
  - Obstructive airways disorder [Unknown]
  - Eczema [Unknown]
  - Hypersensitivity [Unknown]
  - Perfume sensitivity [Unknown]
  - Lymphadenopathy mediastinal [Unknown]
  - Throat clearing [Unknown]

NARRATIVE: CASE EVENT DATE: 201808
